FAERS Safety Report 6188887-6 (Version None)
Quarter: 2009Q2

REPORT INFORMATION
  Report Type: 
  Country: None (occurrence: None)
  Receive Date: 20090513
  Receipt Date: 20090505
  Transmission Date: 20091009
  Serious: Yes (Other)
  Sender: FDA-Public Use
  Company Number: PHHY2009TR17074

PATIENT
  Sex: Male

DRUGS (4)
  1. CYCLOSPORINE [Suspect]
     Indication: BONE MARROW TRANSPLANT
  2. BUSULPHAN [Concomitant]
     Indication: BONE MARROW CONDITIONING REGIMEN
     Dosage: 16 MG/KG
  3. CYCLOPHOSPHAMIDE [Concomitant]
     Indication: BONE MARROW CONDITIONING REGIMEN
     Dosage: 200 MG/KG
  4. UROMITEXAN [Concomitant]

REACTIONS (10)
  - ACUTE GRAFT VERSUS HOST DISEASE IN SKIN [None]
  - BLADDER DISORDER [None]
  - CYSTITIS HAEMORRHAGIC [None]
  - CYTOMEGALOVIRUS URINARY TRACT INFECTION [None]
  - DYSURIA [None]
  - HAEMATOMA [None]
  - HAEMATURIA [None]
  - HAEMORRHAGE URINARY TRACT [None]
  - THROMBOCYTOPENIA [None]
  - URINE CYTOMEGALOVIRUS POSITIVE [None]
